FAERS Safety Report 7470333-3 (Version None)
Quarter: 2011Q2

REPORT INFORMATION
  Report Type: 
  Country: None (occurrence: None)
  Receive Date: 20110510
  Receipt Date: 20110429
  Transmission Date: 20111010
  Serious: Yes (Life-Threatening, Hospitalization, Disabling)
  Sender: FDA-Public Use
  Company Number: US-BAXTER-2011BH013580

PATIENT
  Age: 38 Year
  Sex: Female
  Weight: 146 kg

DRUGS (11)
  1. LANTUS [Concomitant]
     Indication: DIABETES MELLITUS
     Route: 058
     Dates: start: 20110428, end: 20110429
  2. ONDANSETRON [Concomitant]
     Indication: NAUSEA
     Route: 042
     Dates: start: 20110428, end: 20110429
  3. ALBUTEROL [Concomitant]
     Indication: RESPIRATORY DISORDER
     Route: 055
     Dates: start: 20110428, end: 20110429
  4. ATENOLOL [Concomitant]
     Indication: HYPERTENSION
     Route: 048
     Dates: start: 20110428, end: 20110429
  5. ASPIRIN [Concomitant]
     Indication: PLATELET COUNT
     Route: 048
     Dates: start: 20110428, end: 20110429
  6. INSULIN [Concomitant]
     Indication: DIABETES MELLITUS
     Route: 041
     Dates: start: 20110428, end: 20110429
  7. ATORVASTATIN [Concomitant]
     Indication: DYSLIPIDAEMIA
     Route: 048
     Dates: start: 20110428, end: 20110429
  8. LISINOPRIL [Concomitant]
     Indication: HYPERTENSION
     Route: 048
     Dates: start: 20110428, end: 20110429
  9. POTASSIUM CHLORIDE IN PLASTIC CONTAINER [Suspect]
     Indication: HYPOKALAEMIA
     Route: 042
     Dates: start: 20110428, end: 20110428
  10. ACETAMINOPHEN [Concomitant]
     Indication: PAIN
     Route: 048
     Dates: start: 20110428, end: 20110429
  11. NICOTINE [Concomitant]
     Indication: SMOKING CESSATION THERAPY
     Route: 061
     Dates: start: 20110428, end: 20110429

REACTIONS (2)
  - CARDIAC ARREST [None]
  - BRADYCARDIA [None]
